FAERS Safety Report 6534912-X (Version None)
Quarter: 2010Q1

REPORT INFORMATION
  Report Type: 
  Country: None (occurrence: None)
  Receive Date: 20100112
  Receipt Date: 20100105
  Transmission Date: 20100710
  Serious: Yes (Other)
  Sender: FDA-Public Use
  Company Number: US-AMGEN-QUU362623

PATIENT
  Sex: Male

DRUGS (7)
  1. ENBREL [Suspect]
     Indication: PSORIASIS
     Route: 058
     Dates: start: 20061115, end: 20090501
  2. VACCINES [Concomitant]
     Dates: start: 20080901
  3. LISINOPRIL [Concomitant]
     Dates: start: 20061101, end: 20070801
  4. MICARDIS HCT [Concomitant]
     Dates: start: 20080201
  5. SERTRALINE HCL [Concomitant]
     Dates: start: 20080201
  6. CHANTIX [Concomitant]
  7. UNSPECIFIED DIURETIC [Concomitant]

REACTIONS (4)
  - AUTOIMMUNE DISORDER [None]
  - INJECTION SITE DISCOLOURATION [None]
  - INJECTION SITE REACTION [None]
  - MORPHOEA [None]
